FAERS Safety Report 9140698 (Version 1)
Quarter: 2013Q1

REPORT INFORMATION
  Report Type: Report from Study
  Country: IN (occurrence: IN)
  Receive Date: 20130305
  Receipt Date: 20130305
  Transmission Date: 20140127
  Serious: Yes (Other)
  Sender: FDA-Public Use
  Company Number: IN-BRISTOL-MYERS SQUIBB COMPANY-17414095

PATIENT
  Age: 32 Year
  Sex: Male
  Weight: 58 kg

DRUGS (2)
  1. GLUCOPHAGE XR [Suspect]
     Dosage: SINGLE DOSE
     Route: 048
     Dates: start: 20121225
  2. METFORMIN [Suspect]
     Dosage: SINGLE DOSE
     Route: 048

REACTIONS (1)
  - Neck pain [Recovered/Resolved]
